FAERS Safety Report 14197556 (Version 1)
Quarter: 2017Q4

REPORT INFORMATION
  Report Type: Spontaneous
  Country: US (occurrence: US)
  Receive Date: 20171116
  Receipt Date: 20171116
  Transmission Date: 20180321
  Serious: Yes (Other)
  Sender: FDA-Public Use
  Company Number: US-ENDO PHARMACEUTICALS INC-2017-006079

PATIENT
  Age: 61 Year
  Sex: Male
  Weight: 80.27 kg

DRUGS (2)
  1. XIAFLEX [Suspect]
     Active Substance: COLLAGENASE CLOSTRIDIUM HISTOLYTICUM
     Dosage: UNK MG, FIRST INJECTION, CYCLE ONE, SINGLE
     Route: 026
     Dates: start: 20171103
  2. XIAFLEX [Suspect]
     Active Substance: COLLAGENASE CLOSTRIDIUM HISTOLYTICUM
     Indication: PEYRONIE^S DISEASE
     Dosage: UNK MG, SECOND INJECTION, CYCLE ONE, SINGLE
     Route: 026
     Dates: start: 20171108, end: 20171108

REACTIONS (4)
  - Inappropriate schedule of drug administration [Recovered/Resolved]
  - Seizure [Unknown]
  - Dyspnoea [Unknown]
  - Anaphylactic reaction [Unknown]

NARRATIVE: CASE EVENT DATE: 20171108
